FAERS Safety Report 8222439-9 (Version None)
Quarter: 2012Q1

REPORT INFORMATION
  Report Type: 
  Country: None (occurrence: None)
  Receive Date: 20120314
  Receipt Date: 20120302
  Transmission Date: 20120608
  Serious: Yes (Hospitalization)
  Sender: FDA-Public Use
  Company Number: WAES 1203USA00795

PATIENT
  Age: 76 Year
  Sex: Male

DRUGS (15)
  1. AMLODIPINE BESYLATE [Concomitant]
  2. LOSARTAN POTASSIUM AND HYDROCHLOROTHIAZIDE [Concomitant]
  3. CRESTOR [Concomitant]
  4. ACTOS [Concomitant]
  5. MIGLITOL [Concomitant]
  6. AMARYL [Concomitant]
  7. BUFFERIN [Concomitant]
  8. BISOPROLOL FUMARATE [Concomitant]
  9. JANUVIA [Suspect]
     Indication: TYPE 2 DIABETES MELLITUS
     Dosage: 25 MG/DAILY PO
     Route: 048
     Dates: start: 20110125, end: 20120103
  10. ALLOPURINOL [Concomitant]
  11. SODIUM BICARBONATE [Concomitant]
  12. LOXONIN [Concomitant]
  13. ENALAPRIL MALEATE [Concomitant]
  14. ARGAMATE JELLY [Concomitant]
  15. WARFARIN SODIUM [Concomitant]

REACTIONS (2)
  - RENAL FAILURE [None]
  - CARDIAC FAILURE [None]
